FAERS Safety Report 17105296 (Version 1)
Quarter: 2019Q4

REPORT INFORMATION
  Report Type: Spontaneous
  Country: GB (occurrence: GB)
  Receive Date: 20191203
  Receipt Date: 20191203
  Transmission Date: 20200122
  Serious: Yes (Life-Threatening)
  Sender: FDA-Public Use
  Company Number: GB-TEVA-2019-GB-1144265

PATIENT
  Age: 77 Year
  Sex: Female
  Weight: 50.8 kg

DRUGS (3)
  1. SINEMET CR [Concomitant]
     Active Substance: CARBIDOPA\LEVODOPA
  2. LOSARTAN. [Suspect]
     Active Substance: LOSARTAN
     Route: 048
     Dates: start: 20191023, end: 20191023
  3. RASAGILINE MESILATE [Concomitant]
     Active Substance: RASAGILINE MESYLATE

REACTIONS (3)
  - Mouth swelling [Unknown]
  - Seizure [Unknown]
  - Hypersensitivity [Recovered/Resolved]

NARRATIVE: CASE EVENT DATE: 20191023
